FAERS Safety Report 10034892 (Version 1)
Quarter: 2014Q1

REPORT INFORMATION
  Report Type: Spontaneous
  Country: US (occurrence: None)
  Receive Date: 20140306
  Receipt Date: 20140306
  Transmission Date: 20141002
  Serious: Yes (Hospitalization)
  Sender: FDA-Public Use
  Company Number: 163-21880-13063041

PATIENT
  Age: 83 Year
  Sex: Female
  Weight: 44.5 kg

DRUGS (4)
  1. REVLIMID [Suspect]
     Indication: MYELODYSPLASTIC SYNDROME
     Route: 048
     Dates: start: 201007
  2. SOTALOL HYDROCHLORIDE [Concomitant]
  3. CALCIUM +D (OS-CAL) [Concomitant]
  4. MULTIVITAMINS [Concomitant]

REACTIONS (2)
  - Back pain [None]
  - Myelodysplastic syndrome [None]
